FAERS Safety Report 20024030 (Version 1)
Quarter: 2021Q4

REPORT INFORMATION
  Report Type: Spontaneous
  Country: BR (occurrence: BR)
  Receive Date: 20211102
  Receipt Date: 20211102
  Transmission Date: 20220304
  Serious: Yes (Other)
  Sender: FDA-Public Use
  Company Number: BR-PFIZER INC-202101408446

PATIENT
  Age: 51 Year
  Sex: Male
  Weight: 96 kg

DRUGS (6)
  1. PIPERACILLIN SODIUM\TAZOBACTAM SODIUM [Suspect]
     Active Substance: PIPERACILLIN SODIUM\TAZOBACTAM SODIUM
     Indication: Antibiotic therapy
     Dosage: 4.5 G, FOUR TIMES DAILY (EVERY 6 HOURS) (9 PER 6 HOUR)
     Route: 042
     Dates: start: 20210301, end: 202103
  2. PROPOFOL [Suspect]
     Active Substance: PROPOFOL
     Indication: Sedation
     Dosage: 100 ML, CYCLIC (INFUSED IN 24HOURS)
     Route: 042
     Dates: start: 20210225, end: 20210307
  3. TYLENOL [Suspect]
     Active Substance: ACETAMINOPHEN
     Indication: Analgesic therapy
     Dosage: 750 MG, FOUR TIMES DAILY (6/6 HOURS) (5 FOR 6 HOURS)
     Route: 048
     Dates: start: 20210221, end: 202102
  4. ACETAMINOPHEN\CODEINE PHOSPHATE [Suspect]
     Active Substance: ACETAMINOPHEN\CODEINE PHOSPHATE
     Indication: Analgesic therapy
     Dosage: 7.5 MG, THREE TIMES DAILY (EVERY 8 HOURS) (4 BY 8 HOUR)
     Route: 048
     Dates: start: 202102, end: 202102
  5. FENTANYL CITRATE [Suspect]
     Active Substance: FENTANYL CITRATE
     Indication: Sedation
     Dosage: 50 ML, CYCLIC (INFUSED IN 24HOURS)
     Route: 042
     Dates: start: 20210224, end: 20210312
  6. ROSUVASTATIN [Suspect]
     Active Substance: ROSUVASTATIN
     Dosage: 5 MG, DAILY (LOW DOSE)

REACTIONS (7)
  - Gamma-glutamyltransferase increased [Unknown]
  - Drug-induced liver injury [Unknown]
  - Gallbladder enlargement [Unknown]
  - Cholelithiasis [Unknown]
  - Blood alkaline phosphatase increased [Unknown]
  - Aspartate aminotransferase increased [Unknown]
  - Alanine aminotransferase increased [Unknown]

NARRATIVE: CASE EVENT DATE: 20210223
